FAERS Safety Report 7859506-5 (Version None)
Quarter: 2011Q4

REPORT INFORMATION
  Report Type: 
  Country: None (occurrence: None)
  Receive Date: 20111027
  Receipt Date: 20111026
  Transmission Date: 20120403
  Serious: Yes (Other)
  Sender: FDA-Public Use
  Company Number: JP-PFIZER INC-2011257967

PATIENT
  Age: 62 Year
  Sex: Male

DRUGS (6)
  1. RINGEREAZE [Concomitant]
     Dosage: 180 MG,DAILY
     Route: 048
  2. VARENICLINE TARTRATE [Suspect]
     Indication: SMOKING CESSATION THERAPY
     Dosage: 2 MG, DAILY
     Route: 048
     Dates: start: 20110929
  3. BEZAFIBRAT - SLOW RELEASE ^ALIUD PHARMA^ [Concomitant]
     Dosage: 200 MG, DAILY
     Route: 048
  4. AMOBAN [Concomitant]
     Indication: INITIAL INSOMNIA
     Dosage: 10 MG, DAILY
     Route: 048
  5. CONIEL [Concomitant]
     Dosage: 8 MG, DAILY
     Route: 048
  6. DEPAS [Concomitant]
     Indication: INITIAL INSOMNIA
     Dosage: UNK

REACTIONS (4)
  - IRRITABILITY [None]
  - SOMNOLENCE [None]
  - ALTERED STATE OF CONSCIOUSNESS [None]
  - ROAD TRAFFIC ACCIDENT [None]
